FAERS Safety Report 4678672-6 (Version None)
Quarter: 2005Q2

REPORT INFORMATION
  Report Type: 
  Country: None (occurrence: None)
  Receive Date: 20050527
  Receipt Date: 20050518
  Transmission Date: 20051028
  Serious: Yes (Other)
  Sender: FDA-Public Use
  Company Number: 2005077020

PATIENT
  Age: 71 Year
  Sex: Female
  Weight: 63.05 kg

DRUGS (11)
  1. NEURONTIN [Suspect]
     Indication: VULVITIS
     Dosage: 900 MG (300 MG, 1 IN 3 D), ORAL
     Route: 047
     Dates: start: 20040501
  2. VALIUM [Concomitant]
  3. PAXIL [Concomitant]
  4. PROTONIX [Concomitant]
  5. FOSAMAX [Concomitant]
  6. ZETIA [Concomitant]
  7. REQUIP [Concomitant]
  8. VITAMINS (VITAMINS) [Concomitant]
  9. MOBIC [Concomitant]
  10. CALCIUM (CALCIUM) [Concomitant]
  11. DETROL LA [Concomitant]

REACTIONS (1)
  - OEDEMA PERIPHERAL [None]
